FAERS Safety Report 24131252 (Version 1)
Quarter: 2024Q3

REPORT INFORMATION
  Report Type: Spontaneous
  Country: US (occurrence: US)
  Receive Date: 20240724
  Receipt Date: 20240724
  Transmission Date: 20241017
  Serious: Yes (Other)
  Sender: SANOFI AVENTIS
  Company Number: US-SA-SAC20240723000417

PATIENT
  Sex: Male
  Weight: 83 kg

DRUGS (2)
  1. DUPIXENT [Suspect]
     Active Substance: DUPILUMAB
     Indication: Dermatitis atopic
     Dosage: 300 MG, QOW
     Route: 058
     Dates: start: 201812
  2. LOSARTAN POTASSIUM [Concomitant]
     Active Substance: LOSARTAN POTASSIUM

REACTIONS (1)
  - Pneumonia [Unknown]
